FAERS Safety Report 5182582-8 (Version None)
Quarter: 2006Q4

REPORT INFORMATION
  Report Type: 
  Country: None (occurrence: None)
  Receive Date: 20061220
  Receipt Date: 20061206
  Transmission Date: 20070319
  Serious: Yes (Death, Life-Threatening)
  Sender: FDA-Public Use
  Company Number: IL-NOVOPROD-259093

PATIENT
  Age: 57 Year
  Sex: Male

DRUGS (4)
  1. NOVOSEVEN [Suspect]
     Indication: HAEMORRHAGE
     Dosage: 9.6 MG, SINGLE
     Route: 042
     Dates: start: 20061122, end: 20061122
  2. HEXAKAPRON [Concomitant]
  3. BLOOD CELLS, PACKED HUMAN [Concomitant]
  4. CHEMOTHERAPEUTICS NOS [Concomitant]

REACTIONS (2)
  - DISEASE RECURRENCE [None]
  - HAEMORRHAGE [None]
